FAERS Safety Report 9519748 (Version 1)
Quarter: 2013Q3

REPORT INFORMATION
  Report Type: Spontaneous
  Country: US (occurrence: None)
  Receive Date: 20130911
  Receipt Date: 20130911
  Transmission Date: 20140515
  Serious: No
  Sender: FDA-Public Use
  Company Number: None

PATIENT
  Sex: Female
  Weight: 43.3 kg

DRUGS (1)
  1. LEVOTHYROXINE [Suspect]
     Indication: HYPOTHYROIDISM
     Route: 048
     Dates: start: 2008, end: 2010

REACTIONS (5)
  - Fatigue [None]
  - Malaise [None]
  - Drug intolerance [None]
  - Product quality issue [None]
  - Blood thyroid stimulating hormone abnormal [None]
